FAERS Safety Report 22064701 (Version 1)
Quarter: 2023Q1

REPORT INFORMATION
  Report Type: Report from Study
  Country: IL (occurrence: IL)
  Receive Date: 20230306
  Receipt Date: 20230306
  Transmission Date: 20230418
  Serious: Yes (Hospitalization)
  Sender: FDA-Public Use
  Company Number: IL-JNJFOC-20210908841

PATIENT
  Age: 50 Year
  Sex: Male

DRUGS (2)
  1. STELARA [Suspect]
     Active Substance: USTEKINUMAB
     Indication: Crohn^s disease
     Route: 058
     Dates: start: 20200430
  2. STELARA [Suspect]
     Active Substance: USTEKINUMAB
     Route: 058
     Dates: start: 20210917

REACTIONS (7)
  - Abdominal infection [Recovering/Resolving]
  - Postoperative wound infection [Recovering/Resolving]
  - Cholecystitis [Recovering/Resolving]
  - Intestinal obstruction [Recovering/Resolving]
  - Pancreatitis [Recovering/Resolving]
  - Cholelithiasis [Recovering/Resolving]
  - Dermatitis atopic [Not Recovered/Not Resolved]

NARRATIVE: CASE EVENT DATE: 20210731
